FAERS Safety Report 17238256 (Version 1)
Quarter: 2019Q4

REPORT INFORMATION
  Report Type: Spontaneous
  Country: US (occurrence: US)
  Receive Date: 20191211
  Receipt Date: 20191211
  Transmission Date: 20200122
  Serious: No
  Sender: FDA-Public Use
  Company Number: None

PATIENT
  Age: 67 Year
  Sex: Female

DRUGS (11)
  1. PAROXETINE TAB [Concomitant]
  2. METOPROLOL SUC TAB [Concomitant]
  3. RANITIDINE CAP [Concomitant]
  4. TOPIRAMATE TAB [Concomitant]
  5. LOSARTAN POT TAB [Concomitant]
  6. CARB/LEVO TAB [Concomitant]
  7. FAMOTIDINE TAB [Concomitant]
  8. VALACYCLOVIR TAB [Concomitant]
  9. REPATHA [Suspect]
     Active Substance: EVOLOCUMAB
     Dosage: ?          OTHER FREQUENCY:EVERY 14 DAYS;?
     Route: 058
  10. HYDROXYZ HCL [Concomitant]
     Active Substance: HYDROXYZINE HYDROCHLORIDE
  11. PRAMIPEXOLE TAB [Concomitant]

REACTIONS (1)
  - Surgery [None]

NARRATIVE: CASE EVENT DATE: 201912
